FAERS Safety Report 22005852 (Version 1)
Quarter: 2023Q1

REPORT INFORMATION
  Report Type: Spontaneous
  Country: US (occurrence: US)
  Receive Date: 20230217
  Receipt Date: 20230217
  Transmission Date: 20230417
  Serious: Yes (Hospitalization, Other)
  Sender: FDA-Public Use
  Company Number: US-MYLANLABS-2023M1017561

PATIENT
  Age: 66 Year
  Sex: Male

DRUGS (1)
  1. WARFARIN [Suspect]
     Active Substance: WARFARIN
     Indication: Deep vein thrombosis
     Dosage: UNK
     Route: 065

REACTIONS (3)
  - Haematoma muscle [Unknown]
  - Axonal neuropathy [Recovering/Resolving]
  - Loss of personal independence in daily activities [Recovering/Resolving]
